FAERS Safety Report 13070268 (Version 1)
Quarter: 2016Q4

REPORT INFORMATION
  Report Type: Spontaneous
  Country: FR (occurrence: FR)
  Receive Date: 20161228
  Receipt Date: 20161228
  Transmission Date: 20170207
  Serious: Yes (Other)
  Sender: FDA-Public Use
  Company Number: FR-AMGEN-FRASP2016181637

PATIENT
  Age: 76 Year
  Sex: Male

DRUGS (8)
  1. INSULIN [Concomitant]
     Active Substance: INSULIN NOS
  2. BACTRIM [Concomitant]
     Active Substance: SULFAMETHOXAZOLE\TRIMETHOPRIM
  3. KARDEGIC [Concomitant]
     Active Substance: ASPIRIN LYSINE
  4. XGEVA [Suspect]
     Active Substance: DENOSUMAB
     Indication: PRODUCT USED FOR UNKNOWN INDICATION
     Dosage: 120 MG, QMO
     Route: 048
     Dates: start: 20160204
  5. ALDACTONE [Concomitant]
     Active Substance: SPIRONOLACTONE
  6. COVERAM [Concomitant]
     Active Substance: AMLODIPINE\PERINDOPRIL
  7. BISOPROLOL [Concomitant]
     Active Substance: BISOPROLOL
  8. ZELITREX [Concomitant]
     Active Substance: VALACYCLOVIR HYDROCHLORIDE

REACTIONS (1)
  - Osteonecrosis [Unknown]

NARRATIVE: CASE EVENT DATE: 20161206
